FAERS Safety Report 6968141-2 (Version None)
Quarter: 2010Q3

REPORT INFORMATION
  Report Type: 
  Country: None (occurrence: None)
  Receive Date: 20100907
  Receipt Date: 20100901
  Transmission Date: 20110219
  Serious: Yes (Other)
  Sender: FDA-Public Use
  Company Number: B0672692A

PATIENT
  Sex: Female

DRUGS (1)
  1. ZYBAN [Suspect]
     Dosage: 1TAB TWICE PER DAY
     Route: 048

REACTIONS (2)
  - TINNITUS [None]
  - VISUAL ACUITY REDUCED [None]
